FAERS Safety Report 7978342-2 (Version None)
Quarter: 2011Q4

REPORT INFORMATION
  Report Type: 
  Country: None (occurrence: None)
  Receive Date: 20111214
  Receipt Date: 20111208
  Transmission Date: 20120403
  Serious: Yes (Other)
  Sender: FDA-Public Use
  Company Number: AU-PFIZER INC-2011283438

PATIENT
  Age: 23 Year
  Sex: Male
  Weight: 75 kg

DRUGS (1)
  1. PRISTIQ [Suspect]
     Indication: DEPRESSION
     Dosage: 50 MG, 1X/DAY
     Route: 048
     Dates: start: 20111025, end: 20111116

REACTIONS (10)
  - DEPRESSED MOOD [None]
  - NAUSEA [None]
  - FLAT AFFECT [None]
  - SUICIDAL IDEATION [None]
  - ANGER [None]
  - AGGRESSION [None]
  - FRUSTRATION [None]
  - ANHEDONIA [None]
  - POOR QUALITY SLEEP [None]
  - THINKING ABNORMAL [None]
